FAERS Safety Report 18499840 (Version 3)
Quarter: 2020Q4

REPORT INFORMATION
  Report Type: Report from Study
  Country: None (occurrence: CH)
  Receive Date: 20201112
  Receipt Date: 20201124
  Transmission Date: 20210114
  Serious: Yes (Death, Life-Threatening, Other)
  Sender: FDA-Public Use
  Company Number: CH-ABBVIE-20K-151-3647633-00

PATIENT
  Age: 82 Year
  Sex: Female

DRUGS (3)
  1. DUODOPA [Suspect]
     Active Substance: CARBIDOPA\LEVODOPA
     Dosage: MD 8ML, CRD 4.5ML/H, CRN 2.7ML/H, ED 2.0ML, 2 CASSETTES PER DAY?24H THERAOPY
     Route: 050
     Dates: start: 20190620
  2. DUODOPA [Suspect]
     Active Substance: CARBIDOPA\LEVODOPA
     Indication: PARKINSON^S DISEASE
     Route: 050
     Dates: start: 20170807, end: 20190416
  3. DUODOPA [Suspect]
     Active Substance: CARBIDOPA\LEVODOPA
     Dosage: MD 8ML, CRD 4.3ML/H, CRN 2.7ML/H, ED 1.5ML?24H THERAPY
     Route: 050
     Dates: start: 20190416, end: 20190620

REACTIONS (5)
  - Myocardial infarction [Fatal]
  - Therapeutic product effect decreased [Unknown]
  - Seizure [Not Recovered/Not Resolved]
  - Muscle twitching [Not Recovered/Not Resolved]
  - Terminal state [Fatal]

NARRATIVE: CASE EVENT DATE: 20201109
